FAERS Safety Report 16838224 (Version 1)
Quarter: 2019Q3

REPORT INFORMATION
  Report Type: Spontaneous
  Country: US (occurrence: US)
  Receive Date: 20190923
  Receipt Date: 20190923
  Transmission Date: 20191005
  Serious: Yes (Other)
  Sender: FDA-Public Use
  Company Number: US-ELI_LILLY_AND_COMPANY-US201909005718

PATIENT
  Sex: Female

DRUGS (2)
  1. HUMALOG [Suspect]
     Active Substance: INSULIN LISPRO
     Indication: DIABETES MELLITUS
     Dosage: UNK UNK, PRN
     Route: 058
     Dates: start: 2009
  2. LEVEMIR [Concomitant]
     Active Substance: INSULIN DETEMIR
     Indication: DIABETES MELLITUS
     Dosage: 15 U, DAILY (NIGHT)
     Route: 065

REACTIONS (4)
  - Neuropathy peripheral [Unknown]
  - Visual impairment [Not Recovered/Not Resolved]
  - Mental impairment [Unknown]
  - Myocardial infarction [Unknown]
